FAERS Safety Report 9704857 (Version 1)
Quarter: 2013Q4

REPORT INFORMATION
  Report Type: Spontaneous
  Country: US (occurrence: US)
  Receive Date: 20131122
  Receipt Date: 20131122
  Transmission Date: 20140711
  Serious: Yes (Other)
  Sender: FDA-Public Use
  Company Number: US-BAYER-2013-140309

PATIENT
  Sex: Female

DRUGS (1)
  1. ALKA-SELTZER ORIGINAL [Suspect]
     Dosage: UNK
     Route: 048
     Dates: start: 2005

REACTIONS (1)
  - Choking [Recovered/Resolved]
